FAERS Safety Report 13168220 (Version 3)
Quarter: 2017Q1

REPORT INFORMATION
  Report Type: Report from Study
  Country: FR (occurrence: FR)
  Receive Date: 20170131
  Receipt Date: 20170215
  Transmission Date: 20170428
  Serious: Yes (Death, Hospitalization, Other)
  Sender: FDA-Public Use
  Company Number: FR-GILEAD-2017-0254918

PATIENT
  Age: 66 Year
  Sex: Male
  Weight: 57 kg

DRUGS (14)
  1. FORLAX [Concomitant]
     Active Substance: POLYETHYLENE GLYCOL 4000
     Indication: CONSTIPATION
     Dosage: 1 DF, BID
     Dates: start: 20140622
  2. CELLCEPT [Concomitant]
     Active Substance: MYCOPHENOLATE MOFETIL\MYCOPHENOLATE MOFETIL HYDROCHLORIDE
     Indication: IMMUNOSUPPRESSANT DRUG THERAPY
     Dosage: 1000 MG, BID
     Dates: start: 20140622
  3. MOPRAL                             /00661201/ [Concomitant]
     Active Substance: OMEPRAZOLE SODIUM
     Indication: GASTROOESOPHAGEAL REFLUX DISEASE
     Dosage: 40 MG, QD
     Dates: start: 20140622, end: 201508
  4. ROVALCYTE [Concomitant]
     Active Substance: VALGANCICLOVIR HYDROCHLORIDE
     Indication: CYTOMEGALOVIRUS INFECTION
     Dosage: 450 MG, BID
     Dates: start: 20140622
  5. ASPEGIC [Concomitant]
     Active Substance: ASPIRIN DL-LYSINE
     Indication: ANTICOAGULANT THERAPY
     Dosage: 250 MG, QD
     Dates: start: 20140622, end: 201508
  6. AMLOR [Concomitant]
     Active Substance: AMLODIPINE BESYLATE
     Indication: HYPERTENSION
     Dosage: 10 MG, QD
     Dates: start: 20140622, end: 201508
  7. BACTRIM [Concomitant]
     Active Substance: SULFAMETHOXAZOLE\TRIMETHOPRIM
     Indication: ANTIBIOTIC THERAPY
     Dosage: 400 MG, QD
     Dates: start: 20140622, end: 201508
  8. GEMOX                              /08454001/ [Concomitant]
     Indication: HEPATOCELLULAR CARCINOMA
  9. CORTANCYL [Concomitant]
     Active Substance: PREDNISONE
     Indication: IMMUNOSUPPRESSANT DRUG THERAPY
     Dosage: 15 MG, QD
     Dates: start: 20140622, end: 201508
  10. LASILIX                            /00032601/ [Concomitant]
     Active Substance: FUROSEMIDE
     Indication: OEDEMA
     Dosage: 40 MG, QD
     Dates: end: 201508
  11. BARACLUDE [Concomitant]
     Active Substance: ENTECAVIR
     Indication: HEPATITIS B
     Dosage: 0.5 MG, QD
     Dates: end: 201508
  12. TENOFOVIR DISOPROXIL FUMARATE. [Suspect]
     Active Substance: TENOFOVIR DISOPROXIL FUMARATE
     Indication: HEPATITIS B
     Dosage: 1 DF, QD
     Route: 065
     Dates: start: 20150530
  13. LANTUS [Concomitant]
     Active Substance: INSULIN GLARGINE
     Indication: DIABETES MELLITUS
     Dosage: UNK
     Dates: start: 20140622, end: 201508
  14. ADVAGRAF [Concomitant]
     Active Substance: TACROLIMUS
     Indication: IMMUNOSUPPRESSANT DRUG THERAPY
     Dosage: 3.5 MG, QD
     Dates: start: 20140622, end: 201508

REACTIONS (1)
  - Hepatocellular carcinoma [Fatal]

NARRATIVE: CASE EVENT DATE: 20150730
